FAERS Safety Report 4893637-7 (Version None)
Quarter: 2006Q2

REPORT INFORMATION
  Report Type: 
  Country: None (occurrence: None)
  Receive Date: 20060127
  Receipt Date: 20050907
  Transmission Date: 20061013
  Serious: Yes (Hospitalization)
  Sender: FDA-Public Use
  Company Number: AU-ABBOTT-05P-008-0310591-00

PATIENT
  Age: 51 Year
  Sex: Male

DRUGS (11)
  1. RITONAVIR [Suspect]
     Indication: HIV INFECTION
     Dates: start: 20030901
  2. KALETRA [Suspect]
     Indication: HIV INFECTION
     Dosage: 200 MICROGRAMS
     Dates: end: 20030901
  3. FLUTICASONE PROPIONATE [Interacting]
     Indication: RESPIRATORY TRACT INFECTION
     Route: 055
  4. FLUTICASONE PROPIONATE [Interacting]
     Indication: BRONCHOSPASM
  5. GLIPERIMIDE [Concomitant]
     Indication: DIABETES MELLITUS NON-INSULIN-DEPENDENT
     Dosage: 1 MILLIGRAM MANE
  6. GLIPERIMIDE [Concomitant]
  7. ROSIGLITAZONE [Concomitant]
     Indication: DIABETES MELLITUS NON-INSULIN-DEPENDENT
     Dosage: 4 MILLIGRAMS MANE
  8. STAVUDINE [Concomitant]
     Indication: HIV INFECTION
     Dosage: NOT REPORTED
     Dates: end: 20030901
  9. LAMIVUDINE [Concomitant]
     Indication: HIV INFECTION
     Dosage: NOT REPORTED
  10. ATAZANAVIR [Concomitant]
     Indication: HIV INFECTION
     Dosage: NOT REPORTED
     Dates: start: 20030901
  11. TENOFOVIR [Concomitant]
     Indication: HIV INFECTION
     Dosage: NOT REPORTED
     Dates: start: 20030901

REACTIONS (6)
  - ADRENAL SUPPRESSION [None]
  - BLOOD GLUCOSE INCREASED [None]
  - CUSHING'S SYNDROME [None]
  - DRUG INTERACTION [None]
  - DRUG WITHDRAWAL SYNDROME [None]
  - RESPIRATORY TRACT INFECTION [None]
